FAERS Safety Report 6918628-3 (Version None)
Quarter: 2010Q3

REPORT INFORMATION
  Report Type: 
  Country: None (occurrence: None)
  Receive Date: 20100811
  Receipt Date: 20100803
  Transmission Date: 20110219
  Serious: Yes (Disabling, Other)
  Sender: FDA-Public Use
  Company Number: US-PFIZER INC-2010045192

PATIENT
  Sex: Female

DRUGS (14)
  1. CHANTIX [Suspect]
     Indication: SMOKING CESSATION THERAPY
     Dosage: UNK
     Route: 048
     Dates: start: 20070114, end: 20081125
  2. HYDROCODONE [Concomitant]
     Indication: PAIN
     Dosage: UNK
     Dates: start: 20030101
  3. CEPHALEXIN [Concomitant]
     Indication: ANTIBIOTIC THERAPY
     Dosage: UNK
     Dates: start: 20050101, end: 20090101
  4. PAROXETINE [Concomitant]
     Indication: ANXIETY
     Dosage: UNK
     Dates: start: 20060101, end: 20090101
  5. PAROXETINE [Concomitant]
     Indication: DEPRESSION
  6. PAXIL CR [Concomitant]
     Indication: DEPRESSION
     Dosage: UNK
     Dates: start: 20010101, end: 20090101
  7. PAXIL CR [Concomitant]
     Indication: ANXIETY
  8. LEVAQUIN [Concomitant]
     Indication: ANTIBIOTIC THERAPY
     Dosage: UNK
     Dates: start: 20060101, end: 20090101
  9. XANAX [Concomitant]
     Indication: DEPRESSION
  10. XANAX [Concomitant]
     Indication: ANXIETY
  11. ATIVAN [Concomitant]
     Indication: DEPRESSION
     Dosage: UNK
     Dates: start: 20050101
  12. ATIVAN [Concomitant]
     Indication: ANXIETY
  13. LORAZEPAM [Concomitant]
     Indication: ANXIETY
     Dosage: UNK
     Dates: start: 20020101, end: 20090101
  14. PREDNISONE [Concomitant]
     Indication: CHRONIC OBSTRUCTIVE PULMONARY DISEASE
     Dosage: UNK
     Dates: start: 20050101, end: 20090101

REACTIONS (11)
  - AMNESIA [None]
  - ANXIETY [None]
  - COGNITIVE DISORDER [None]
  - CONFUSIONAL STATE [None]
  - DEPRESSION [None]
  - DISORIENTATION [None]
  - HEADACHE [None]
  - MENTAL DISORDER [None]
  - PRESYNCOPE [None]
  - SUICIDAL IDEATION [None]
  - VISION BLURRED [None]
